FAERS Safety Report 8544678-X (Version None)
Quarter: 2012Q3

REPORT INFORMATION
  Report Type: 
  Country: None (occurrence: None)
  Receive Date: 20120727
  Receipt Date: 20120717
  Transmission Date: 20120928
  Serious: Yes (Hospitalization)
  Sender: FDA-Public Use
  Company Number: FR-BRISTOL-MYERS SQUIBB COMPANY-16778094

PATIENT
  Age: 80 Year
  Sex: Male

DRUGS (8)
  1. LERCANIDIPINE [Suspect]
     Indication: HYPERTENSION
     Route: 048
     Dates: start: 20100901, end: 20120519
  2. ATORVASTATIN [Concomitant]
  3. IRBESARTAN AND HYDROCHLOROTHIAZIDE [Suspect]
     Route: 048
     Dates: start: 20080212, end: 20120519
  4. ALFUZOSIN [Concomitant]
  5. OXAZEPAM [Concomitant]
  6. ATENOLOL [Suspect]
     Indication: HYPERTENSION
     Dates: start: 20100901, end: 20120524
  7. PLAVIX [Concomitant]
  8. TROSPIUM CHLORIDE [Concomitant]
     Indication: POLLAKIURIA
     Dates: start: 20100901

REACTIONS (6)
  - RENAL FAILURE CHRONIC [None]
  - FALL [None]
  - CONFUSIONAL STATE [None]
  - RHABDOMYOLYSIS [None]
  - NEPHROANGIOSCLEROSIS [None]
  - URINARY RETENTION [None]
